FAERS Safety Report 24031851 (Version 1)
Quarter: 2024Q2

REPORT INFORMATION
  Report Type: Spontaneous
  Country: US (occurrence: US)
  Receive Date: 20240629
  Receipt Date: 20240629
  Transmission Date: 20240715
  Serious: No
  Sender: FDA-Public Use
  Company Number: US-SA-SAC20240626000579

PATIENT
  Age: 56 Year
  Sex: Female

DRUGS (9)
  1. DUPIXENT [Suspect]
     Active Substance: DUPILUMAB
     Indication: Dermatitis atopic
     Dosage: 300 MG, QOW
     Route: 058
     Dates: start: 20240521
  2. VYVANSE [Concomitant]
     Active Substance: LISDEXAMFETAMINE DIMESYLATE
     Dosage: UNK
     Route: 048
  3. GABAPENTIN [Concomitant]
     Active Substance: GABAPENTIN
     Dosage: UNK
     Route: 048
  4. GUANFACINE HYDROCHLORIDE [Concomitant]
     Active Substance: GUANFACINE HYDROCHLORIDE
     Route: 048
  5. NORETHINDRONE ACETATE AND ETHINYL ESTRADIOL [Concomitant]
     Active Substance: ETHINYL ESTRADIOL\NORETHINDRONE ACETATE
     Dosage: UNK
     Route: 048
  6. CITALOPRAM HYDROBROMIDE [Concomitant]
     Active Substance: CITALOPRAM HYDROBROMIDE
     Dosage: UNK
     Route: 048
  7. HYDROXYZINE HYDROCHLORIDE [Concomitant]
     Active Substance: HYDROXYZINE HYDROCHLORIDE
     Dosage: UNK
     Route: 048
  8. TRIAMCINOLONE ACETONIDE [Concomitant]
     Active Substance: TRIAMCINOLONE ACETONIDE
     Dosage: UNK
  9. CYCLOSPORINE [Concomitant]
     Active Substance: CYCLOSPORINE

REACTIONS (2)
  - Injection site pain [Unknown]
  - Fatigue [Unknown]

NARRATIVE: CASE EVENT DATE: 20240101
